FAERS Safety Report 21795229 (Version 1)
Quarter: 2022Q4

REPORT INFORMATION
  Report Type: Spontaneous
  Country: ES (occurrence: None)
  Receive Date: 20221229
  Receipt Date: 20221229
  Transmission Date: 20230113
  Serious: Yes (Life-Threatening, Hospitalization)
  Sender: FDA-Public Use
  Company Number: 2022A416740

PATIENT
  Age: 69 Year
  Sex: Female
  Weight: 82 kg

DRUGS (9)
  1. CALQUENCE [Suspect]
     Active Substance: ACALABRUTINIB
     Indication: Chronic lymphocytic leukaemia
     Dosage: 1-0-1
     Route: 048
     Dates: start: 20221102, end: 20221108
  2. FAMOTIDINA CINFA [Concomitant]
     Indication: Chemotherapy side effect prophylaxis
     Dosage: 0-1-0
     Route: 065
     Dates: start: 20220916, end: 20221106
  3. COLNATUR POLVO [Concomitant]
     Indication: Arthralgia
     Dosage: 10GR POR MA?ANA
     Route: 065
     Dates: start: 20201201, end: 20221106
  4. CISTITUS [Concomitant]
     Indication: Cystitis
     Dosage: 0-1-0
     Route: 065
     Dates: start: 20161212, end: 20221103
  5. CALCIFEDIOL [Concomitant]
     Active Substance: CALCIFEDIOL
     Indication: Vitamin D deficiency
     Dosage: CADA 15 DIAS
     Route: 065
     Dates: start: 20201001, end: 20221115
  6. ALOPURINOL ARISTO [Concomitant]
     Indication: Chemotherapy side effect prophylaxis
     Dosage: 0-0-1
     Route: 065
     Dates: start: 20220916, end: 20221213
  7. DIETARY SUPPLEMENT [Concomitant]
     Active Substance: DIETARY SUPPLEMENT
     Indication: Blood cholesterol increased
     Dosage: 1-0-0
     Route: 065
     Dates: start: 20220501, end: 20221103
  8. COENZIMA Q10 [Concomitant]
     Indication: Asthenia
     Dosage: 1-0-0
     Route: 065
     Dates: start: 20161205, end: 20221106
  9. PREDNISONE [Concomitant]
     Active Substance: PREDNISONE
     Indication: Chemotherapy side effect prophylaxis
     Dosage: 1-0-0
     Route: 065
     Dates: start: 20221010, end: 20221106

REACTIONS (1)
  - Hyponatraemia [Recovered/Resolved]

NARRATIVE: CASE EVENT DATE: 20221107
